FAERS Safety Report 4297428-X (Version None)
Quarter: 2004Q1

REPORT INFORMATION
  Report Type: 
  Country: None (occurrence: None)
  Receive Date: 20040213
  Receipt Date: 20040207
  Transmission Date: 20041129
  Serious: Yes (Hospitalization)
  Sender: FDA-Public Use
  Company Number: US-JNJFOC-20040202408

PATIENT
  Sex: Male

DRUGS (1)
  1. LEVAQUIN [Suspect]
     Indication: DRUG USE FOR UNKNOWN INDICATION

REACTIONS (10)
  - DEPRESSION [None]
  - DRUG HYPERSENSITIVITY [None]
  - MALE SEXUAL DYSFUNCTION [None]
  - NERVE INJURY [None]
  - ORAL MUCOSAL BLISTERING [None]
  - PENILE BLISTER [None]
  - PENILE HAEMORRHAGE [None]
  - PURULENCE [None]
  - THROAT IRRITATION [None]
  - WOUND SECRETION [None]
